FAERS Safety Report 16192377 (Version 1)
Quarter: 2019Q2

REPORT INFORMATION
  Report Type: Spontaneous
  Country: US (occurrence: US)
  Receive Date: 20190412
  Receipt Date: 20190412
  Transmission Date: 20190711
  Serious: Yes (Death)
  Sender: FDA-Public Use
  Company Number: US-IMPAX LABORATORIES, LLC-2019-IPXL-00832

PATIENT

DRUGS (1)
  1. OXYMORPHONE HYDROCHLORIDE ER [Suspect]
     Active Substance: OXYMORPHONE HYDROCHLORIDE
     Indication: PRODUCT USED FOR UNKNOWN INDICATION
     Dosage: UNK
     Route: 042

REACTIONS (7)
  - Staphylococcal sepsis [Fatal]
  - Septic shock [Fatal]
  - Septic embolus [Fatal]
  - Myocardial infarction [Fatal]
  - Incorrect route of product administration [Unknown]
  - Endocarditis [Fatal]
  - Drug abuse [Unknown]
